FAERS Safety Report 21213711 (Version 2)
Quarter: 2022Q3

REPORT INFORMATION
  Report Type: Report from Study
  Country: BE (occurrence: BE)
  Receive Date: 20220816
  Receipt Date: 20220826
  Transmission Date: 20221027
  Serious: Yes (Hospitalization)
  Sender: FDA-Public Use
  Company Number: BE-ABBVIE-22K-013-4501739-00

PATIENT
  Age: 64 Year
  Sex: Female
  Weight: 75 kg

DRUGS (15)
  1. UPADACITINIB [Suspect]
     Active Substance: UPADACITINIB
     Indication: Rheumatoid arthritis
     Route: 048
     Dates: start: 20211222, end: 20220811
  2. METHOTREXATE [Concomitant]
     Active Substance: METHOTREXATE
     Indication: Rheumatoid arthritis
     Route: 048
  3. METHYLPREDNISOLONE [Concomitant]
     Active Substance: METHYLPREDNISOLONE
     Indication: Rheumatoid arthritis
     Route: 048
     Dates: start: 202110
  4. PIROXICAM [Concomitant]
     Active Substance: PIROXICAM
     Indication: Rheumatoid arthritis
     Dosage: AS NEEDED
     Route: 048
     Dates: start: 202109
  5. FOLIC ACID [Concomitant]
     Active Substance: FOLIC ACID
     Indication: Prophylaxis
     Route: 048
  6. QUETIAPINE [Concomitant]
     Active Substance: QUETIAPINE
     Indication: Sleep disorder
     Route: 048
  7. ESCITALOPRAM [Concomitant]
     Active Substance: ESCITALOPRAM OXALATE
     Indication: Depressed mood
     Route: 048
  8. SARS-COV-2 VACCINE [Concomitant]
     Indication: COVID-19 prophylaxis
     Dates: start: 20210530, end: 20210530
  9. SARS-COV-2 VACCINE [Concomitant]
     Dates: start: 20210701, end: 20210701
  10. ACYCLOVIR [Concomitant]
     Active Substance: ACYCLOVIR
     Indication: Ophthalmic herpes zoster
     Dosage: 5 TIMES DAILY
     Route: 048
     Dates: start: 20220725
  11. CEFTRIAXONE [Concomitant]
     Active Substance: CEFTRIAXONE
     Indication: Parainfluenzae virus infection
     Route: 042
     Dates: start: 20220622, end: 20220623
  12. DEXAMETHASONE [Concomitant]
     Active Substance: DEXAMETHASONE
     Indication: Ophthalmic herpes zoster
     Dosage: 4 TIMES DAILY
     Route: 031
     Dates: start: 20220725
  13. CYCLOGYL [Concomitant]
     Active Substance: CYCLOPENTOLATE HYDROCHLORIDE
     Indication: Ophthalmic herpes zoster
     Route: 031
     Dates: start: 20220725, end: 20220810
  14. OFLOXACIN [Concomitant]
     Active Substance: OFLOXACIN
     Indication: Ophthalmic herpes zoster
     Dosage: 3 TIMES DAILY
     Route: 031
     Dates: start: 20220725, end: 20220810
  15. GANCICLOVIR [Concomitant]
     Active Substance: GANCICLOVIR
     Indication: Ophthalmic herpes zoster
     Dosage: 1 APPLICATION 5 TIMES DAILY
     Route: 031
     Dates: start: 20220725, end: 20220810

REACTIONS (2)
  - Bronchitis [Recovered/Resolved]
  - Parainfluenzae virus infection [Recovered/Resolved]

NARRATIVE: CASE EVENT DATE: 20220622
